FAERS Safety Report 6446487-4 (Version None)
Quarter: 2009Q4

REPORT INFORMATION
  Report Type: 
  Country: None (occurrence: None)
  Receive Date: 20091119
  Receipt Date: 20091110
  Transmission Date: 20100525
  Serious: Yes (Life-Threatening, Hospitalization, Other)
  Sender: FDA-Public Use
  Company Number: DE-NOVOPROD-292856

PATIENT
  Sex: Female

DRUGS (4)
  1. LEVEMIR [Suspect]
     Indication: DIABETES MELLITUS
     Dosage: DAILY DOSE IS ALTERNATING
     Route: 058
     Dates: start: 20051201
  2. NOVORAPID [Concomitant]
     Dosage: DAILY DOSE IS ALTERNATING
     Dates: start: 20000101
  3. ENALAPRIL MALEATE [Concomitant]
     Dates: start: 20020101
  4. TAMOXIFEN CITRATE [Concomitant]
     Dates: start: 20070201

REACTIONS (1)
  - BREAST CANCER [None]
